FAERS Safety Report 4464656-X (Version None)
Quarter: 2004Q3

REPORT INFORMATION
  Report Type: 
  Country: None (occurrence: None)
  Receive Date: 20040929
  Receipt Date: 20040907
  Transmission Date: 20050211
  Serious: Yes (Hospitalization)
  Sender: FDA-Public Use
  Company Number: 2002-05070

PATIENT
  Age: 38 Year
  Sex: Female

DRUGS (10)
  1. TENOFOVIR DF (TENOFOVIR DISOPROXIL FUMARATE) [Suspect]
     Indication: HIV INFECTION
     Dosage: 300 MG ONCE A DAY, ORAL
     Route: 048
     Dates: start: 20020614, end: 20020901
  2. SUSTIVA [Concomitant]
  3. LAMIVUDINE (LAMIVUDINE) [Concomitant]
  4. KALETRA [Concomitant]
  5. SEPTRA [Concomitant]
  6. METHADONE HCL [Concomitant]
  7. TYLENOL W/ CODEINE NO. 3 [Concomitant]
  8. METFORMIN HCL [Concomitant]
  9. FLUCONAZOLE [Concomitant]
  10. AVANDIA [Concomitant]

REACTIONS (4)
  - ABDOMINAL HERNIA [None]
  - HEPATIC ENZYME INCREASED [None]
  - HEPATOSPLENOMEGALY [None]
  - HEPATOTOXICITY [None]
